FAERS Safety Report 10203623 (Version 2)
Quarter: 2014Q2

REPORT INFORMATION
  Report Type: Spontaneous
  Country: GB (occurrence: GB)
  Receive Date: 20140529
  Receipt Date: 20140606
  Transmission Date: 20141212
  Serious: Yes (Hospitalization)
  Sender: FDA-Public Use
  Company Number: GB-MYLANLABS-2014S1012014

PATIENT
  Age: 93 Year
  Sex: Male

DRUGS (3)
  1. BISOPROLOL [Suspect]
     Dosage: UNK UKN, UNK
  2. CLOZARIL [Suspect]
     Dosage: 300 MG, UNK
     Route: 048
     Dates: start: 20140503
  3. DIAZEPAM [Suspect]
     Dosage: UNK UKN, UNK

REACTIONS (3)
  - Medication error [Unknown]
  - Miosis [Unknown]
  - Unresponsive to stimuli [Unknown]
